FAERS Safety Report 13611439 (Version 1)
Quarter: 2017Q2

REPORT INFORMATION
  Report Type: Spontaneous
  Country: US (occurrence: US)
  Receive Date: 20170605
  Receipt Date: 20170605
  Transmission Date: 20170830
  Serious: No
  Sender: FDA-Public Use
  Company Number: US-PFIZER INC-2017241636

PATIENT

DRUGS (1)
  1. ADVIL [Suspect]
     Active Substance: IBUPROFEN
     Dosage: UNK

REACTIONS (5)
  - Product physical issue [Unknown]
  - Product taste abnormal [Unknown]
  - Product size issue [Unknown]
  - Poor quality drug administered [Unknown]
  - Dysgeusia [Unknown]
